FAERS Safety Report 6148160-9 (Version None)
Quarter: 2009Q2

REPORT INFORMATION
  Report Type: 
  Country: None (occurrence: None)
  Receive Date: 20090408
  Receipt Date: 20090408
  Transmission Date: 20091009
  Serious: Yes (Hospitalization, Other)
  Sender: FDA-Public Use
  Company Number: US-PFIZER INC-2006097772

PATIENT
  Sex: Female

DRUGS (8)
  1. CELEBREX [Suspect]
     Indication: OSTEOARTHRITIS
     Route: 048
     Dates: start: 20041201, end: 20051001
  2. ALL OTHER THERAPEUTIC PRODUCTS [Suspect]
     Indication: UROSEPSIS
  3. SYNTHROID [Concomitant]
  4. ATENOLOL [Concomitant]
  5. AVALIDE [Concomitant]
  6. TYLENOL [Concomitant]
  7. ALL OTHER THERAPEUTIC PRODUCTS [Concomitant]
  8. BUMEX [Concomitant]

REACTIONS (7)
  - ASTHENIA [None]
  - BLOOD CREATININE INCREASED [None]
  - BLOOD POTASSIUM DECREASED [None]
  - CARDIAC FAILURE CONGESTIVE [None]
  - LIVER INJURY [None]
  - RENAL DISORDER [None]
  - UROSEPSIS [None]
